FAERS Safety Report 8346247-3 (Version None)
Quarter: 2012Q2

REPORT INFORMATION
  Report Type: 
  Country: None (occurrence: None)
  Receive Date: 20120507
  Receipt Date: 20120423
  Transmission Date: 20120825
  Serious: Yes (Other)
  Sender: FDA-Public Use
  Company Number: US-2012-10407

PATIENT
  Age: 71 Year
  Sex: Male

DRUGS (2)
  1. ANTIBIOTICS [Concomitant]
  2. SAMSCA [Suspect]
     Indication: HYPONATRAEMIA
     Dosage: 15 MG MILLIGRAM(S) DAILY DOSE
     Dates: start: 20120405, end: 20120406

REACTIONS (1)
  - VASCULITIS [None]
